FAERS Safety Report 6451610-1 (Version None)
Quarter: 2009Q4

REPORT INFORMATION
  Report Type: 
  Country: None (occurrence: None)
  Receive Date: 20091123
  Receipt Date: 20091110
  Transmission Date: 20100525
  Serious: Yes (Hospitalization)
  Sender: FDA-Public Use
  Company Number: PHHO2009TR14254

PATIENT
  Sex: Male
  Weight: 76 kg

DRUGS (2)
  1. RAD 666 RAD+TAB [Suspect]
     Indication: METASTATIC RENAL CELL CARCINOMA
     Dosage: 10 MG/DAY
     Route: 048
     Dates: start: 20090830, end: 20091108
  2. AVASTIN [Suspect]
     Indication: METASTATIC RENAL CELL CARCINOMA
     Dosage: 10 MG/KG EVERY 2 WEEKS
     Route: 042
     Dates: start: 20090830, end: 20091108

REACTIONS (1)
  - RECTAL HAEMORRHAGE [None]
